FAERS Safety Report 8151178-8 (Version None)
Quarter: 2012Q1

REPORT INFORMATION
  Report Type: 
  Country: None (occurrence: None)
  Receive Date: 20120220
  Receipt Date: 20120213
  Transmission Date: 20120608
  Serious: Yes (Other)
  Sender: FDA-Public Use
  Company Number: DE-GLAXOSMITHKLINE-D0074460B

PATIENT
  Age: 30 Year
  Sex: Female
  Weight: 80 kg

DRUGS (4)
  1. LAMOTRIGINE [Suspect]
     Indication: EPILEPSY
     Dosage: 150MG PER DAY
     Route: 048
     Dates: start: 20100708, end: 20110211
  2. FOLIC ACID [Concomitant]
     Indication: PROPHYLAXIS OF NEURAL TUBE DEFECT
     Dosage: 5MG PER DAY
     Route: 048
     Dates: start: 20100708
  3. THYROXIN [Concomitant]
     Indication: HYPOTHYROIDISM
     Route: 048
     Dates: start: 20100101, end: 20110101
  4. FRISIUM [Suspect]
     Indication: EPILEPSY
     Dosage: 2.5MG THREE TIMES PER DAY
     Route: 048
     Dates: start: 20101217, end: 20110211

REACTIONS (6)
  - FEMUR FRACTURE [None]
  - PREMATURE BABY [None]
  - VITAMIN D DEFICIENCY [None]
  - MATERNAL EXPOSURE DURING PREGNANCY [None]
  - CONVULSION [None]
  - LIVE BIRTH [None]
